FAERS Safety Report 9878024 (Version 2)
Quarter: 2014Q2

REPORT INFORMATION
  Report Type: Spontaneous
  Country: US (occurrence: None)
  Receive Date: 20140204
  Receipt Date: 20140418
  Transmission Date: 20141212
  Serious: Yes (Hospitalization, Other)
  Sender: FDA-Public Use
  Company Number: 2014-US-001006

PATIENT
  Age: 53 Year
  Sex: Male

DRUGS (3)
  1. XYREM (SODIUM OXYBATE) ORAL SOLUTION, 500MG/ML [Suspect]
     Indication: INSOMNIA
     Route: 048
     Dates: start: 201108, end: 2011
  2. VIIBRYD (VILAZODONE HYDROCHLORIDE) [Suspect]
     Indication: PRODUCT USED FOR UNKNOWN INDICATION
  3. KLONOPIN (CLONAZEPAM) (TABLETS) [Suspect]
     Indication: PRODUCT USED FOR UNKNOWN INDICATION

REACTIONS (13)
  - Hepatitis [None]
  - Surgery [None]
  - Food poisoning [None]
  - Hepatitis B [None]
  - Infection [None]
  - Adverse reaction [None]
  - Weight decreased [None]
  - Delirium [None]
  - Balance disorder [None]
  - Insomnia [None]
  - Agitation [None]
  - Headache [None]
  - Off label use [None]
